FAERS Safety Report 5345690-4 (Version None)
Quarter: 2007Q2

REPORT INFORMATION
  Report Type: 
  Country: None (occurrence: None)
  Receive Date: 20070425
  Receipt Date: 20061031
  Transmission Date: 20071010
  Serious: Yes (Life-Threatening)
  Sender: FDA-Public Use
  Company Number: 2006-149791-NL

PATIENT
  Age: 74 Year
  Sex: Male
  Weight: 82 kg

DRUGS (3)
  1. ZEMURON [Suspect]
     Indication: INTUBATION
     Dosage: 50 MG DAILY INTRAVENOUS (NOS)
     Route: 042
     Dates: start: 20061031, end: 20061031
  2. VERSED [Concomitant]
  3. PHENTANYL NOS [Concomitant]

REACTIONS (1)
  - ANAPHYLACTIC REACTION [None]
